FAERS Safety Report 6158846-8 (Version None)
Quarter: 2009Q2

REPORT INFORMATION
  Report Type: 
  Country: None (occurrence: None)
  Receive Date: 20090417
  Receipt Date: 20090414
  Transmission Date: 20091009
  Serious: Yes (Death, Hospitalization, Other)
  Sender: FDA-Public Use
  Company Number: PHHY2009BR13902

PATIENT
  Age: 58 Year
  Sex: Male

DRUGS (3)
  1. GLEEVEC [Suspect]
     Indication: CHORDOMA
     Dosage: 400 MG, QD
     Dates: start: 20090205, end: 20090208
  2. DIMORF [Concomitant]
     Indication: TUMOUR PAIN
     Dosage: 10 MG, QID
     Route: 048
     Dates: start: 20081001
  3. CARBAMAZEPINE [Concomitant]
     Indication: TUMOUR PAIN
     Dosage: 2 DF, BID
     Route: 048

REACTIONS (5)
  - DYSPNOEA [None]
  - MALAISE [None]
  - MULTI-ORGAN FAILURE [None]
  - RESPIRATORY FAILURE [None]
  - TRACHEOSTOMY [None]
